FAERS Safety Report 19234521 (Version 3)
Quarter: 2021Q3

REPORT INFORMATION
  Report Type: Spontaneous
  Country: US (occurrence: US)
  Receive Date: 20210508
  Receipt Date: 20210811
  Transmission Date: 20211014
  Serious: No
  Sender: FDA-Public Use
  Company Number: US-LUPIN PHARMACEUTICALS INC.-2021-06248

PATIENT
  Age: 84 Year
  Sex: Female

DRUGS (2)
  1. LISINOPRIL TABLETS USP, 10MG [Suspect]
     Active Substance: LISINOPRIL
     Dosage: UNK (HALF TABLETS FOR A WEEK)
     Route: 048
     Dates: start: 202011, end: 202011
  2. LISINOPRIL TABLETS USP, 10MG [Suspect]
     Active Substance: LISINOPRIL
     Indication: PRODUCT USED FOR UNKNOWN INDICATION
     Dosage: 10 MILLIGRAM, BID (FOR A WEEK OR TWO WEEKS)
     Route: 048
     Dates: start: 202011, end: 202011

REACTIONS (15)
  - Adverse event [Unknown]
  - Dehydration [Unknown]
  - Pollakiuria [Unknown]
  - Sensory loss [Unknown]
  - Anosmia [Unknown]
  - Dysphagia [Unknown]
  - Tongue movement disturbance [Unknown]
  - Mouth swelling [Unknown]
  - Anaesthesia oral [Unknown]
  - Tongue discolouration [Unknown]
  - Swollen tongue [Unknown]
  - Dyspnoea [Unknown]
  - Wrong technique in product usage process [Unknown]
  - Ageusia [Unknown]
  - Dysarthria [Unknown]

NARRATIVE: CASE EVENT DATE: 202011
